FAERS Safety Report 24742200 (Version 1)
Quarter: 2024Q4

REPORT INFORMATION
  Report Type: Spontaneous
  Country: US (occurrence: None)
  Receive Date: 20241217
  Receipt Date: 20241217
  Transmission Date: 20250115
  Serious: No
  Sender: REDHILL BIOPHARMA INC.
  Company Number: US-RedHill Biopharma Inc.-RDH202408-000043

PATIENT
  Sex: Female

DRUGS (1)
  1. TALICIA [Suspect]
     Active Substance: AMOXICILLIN\OMEPRAZOLE MAGNESIUM\RIFABUTIN
     Indication: Helicobacter infection
     Route: 048
     Dates: start: 20240329, end: 20240412

REACTIONS (1)
  - Drug ineffective [Unknown]

NARRATIVE: CASE EVENT DATE: 20240726
